FAERS Safety Report 4751640-1 (Version None)
Quarter: 2005Q3

REPORT INFORMATION
  Report Type: 
  Country: None (occurrence: None)
  Receive Date: 20050822
  Receipt Date: 20050816
  Transmission Date: 20060218
  Serious: Yes (Death, Hospitalization)
  Sender: FDA-Public Use
  Company Number: HQWYE703604AUG05

PATIENT
  Age: 89 Year
  Sex: Male

DRUGS (5)
  1. TAZOCIN (PIPERACILLIN/TAZOBACTAM, INJECTION) LOT NO.: 906 [Suspect]
     Indication: BRONCHIECTASIS
     Dosage: 2.25 GRAMS EVERY 6 HOURS INTRAVENOUS
     Route: 042
     Dates: start: 20050727, end: 20050729
  2. TAZOCIN (PIPERACILLIN/TAZOBACTAM, INJECTION) LOT NO.: 906 [Suspect]
     Indication: PYREXIA
     Dosage: 2.25 GRAMS EVERY 6 HOURS INTRAVENOUS
     Route: 042
     Dates: start: 20050727, end: 20050729
  3. MAGNESIUM OXIDE (MAGNESIUM OXIDE) [Concomitant]
  4. GASCON (DIMETICONE) [Concomitant]
  5. DULOCOLAX (BISACODYL) [Concomitant]

REACTIONS (9)
  - DERMATITIS BULLOUS [None]
  - EAR HAEMORRHAGE [None]
  - EPISTAXIS [None]
  - ERYTHEMA [None]
  - EYE HAEMORRHAGE [None]
  - MOUTH HAEMORRHAGE [None]
  - MUCOCUTANEOUS ULCERATION [None]
  - RENAL FAILURE ACUTE [None]
  - STEVENS-JOHNSON SYNDROME [None]
